FAERS Safety Report 6803966-5 (Version None)
Quarter: 2010Q2

REPORT INFORMATION
  Report Type: 
  Country: None (occurrence: None)
  Receive Date: 20100628
  Receipt Date: 20060502
  Transmission Date: 20101027
  Serious: No
  Sender: FDA-Public Use
  Company Number: US-PFIZER INC-2006060410

PATIENT
  Sex: Male
  Weight: 81.19 kg

DRUGS (6)
  1. SUTENT [Suspect]
     Indication: RENAL CANCER
     Route: 048
     Dates: start: 20060412
  2. LOTREL [Concomitant]
     Route: 065
  3. IBUPROFEN [Concomitant]
     Route: 065
  4. AVALIDE [Concomitant]
     Route: 065
  5. NYSTATIN [Concomitant]
     Indication: CANDIDIASIS
     Route: 048
  6. ALL OTHER THERAPEUTIC PRODUCTS [Concomitant]
     Indication: RENAL CANCER
     Route: 065

REACTIONS (3)
  - DIARRHOEA [None]
  - NAUSEA [None]
  - TESTICULAR SWELLING [None]
